FAERS Safety Report 24396056 (Version 1)
Quarter: 2024Q4

REPORT INFORMATION
  Report Type: Spontaneous
  Country: RO (occurrence: RO)
  Receive Date: 20241004
  Receipt Date: 20241004
  Transmission Date: 20250114
  Serious: Yes (Hospitalization, Other)
  Sender: TEVA
  Company Number: RO-TEVA-VS-3249174

PATIENT
  Age: 62 Year
  Sex: Female

DRUGS (11)
  1. LEFLUNOMIDE [Suspect]
     Active Substance: LEFLUNOMIDE
     Indication: Rheumatoid arthritis
     Route: 065
  2. OLANZAPINE [Concomitant]
     Active Substance: OLANZAPINE
     Indication: Mental disorder
     Route: 065
  3. Mirtazapine, [Concomitant]
     Indication: Mental disorder
     Route: 065
  4. Mirtazapine, [Concomitant]
     Indication: Mental disorder
     Route: 065
  5. PIRACETAM [Concomitant]
     Active Substance: PIRACETAM
     Indication: Mental disorder
     Route: 065
  6. ACECLOFENAC [Concomitant]
     Active Substance: ACECLOFENAC
     Indication: Rheumatoid arthritis
     Route: 065
  7. ALPRAZOLAM [Concomitant]
     Active Substance: ALPRAZOLAM
     Indication: Mental disorder
     Route: 065
  8. VALPROIC ACID [Concomitant]
     Active Substance: VALPROIC ACID
     Indication: Mental disorder
     Route: 065
  9. VORTIOXETINE [Concomitant]
     Active Substance: VORTIOXETINE
     Indication: Mental disorder
     Route: 065
  10. AMISULPRIDE [Concomitant]
     Active Substance: AMISULPRIDE
     Indication: Mental disorder
     Route: 065
  11. SULFASALAZINE [Concomitant]
     Active Substance: SULFASALAZINE
     Indication: Rheumatoid arthritis
     Route: 065

REACTIONS (1)
  - Depression [Recovering/Resolving]
